FAERS Safety Report 8316340-X (Version None)
Quarter: 2012Q2

REPORT INFORMATION
  Report Type: 
  Country: None (occurrence: None)
  Receive Date: 20120427
  Receipt Date: 20120420
  Transmission Date: 20120825
  Serious: No
  Sender: FDA-Public Use
  Company Number: US-PFIZER INC-2012068966

PATIENT
  Sex: Female

DRUGS (6)
  1. PREMARIN [Suspect]
     Indication: OFF LABEL USE
     Dosage: 0.625 MG, UNK
     Route: 067
     Dates: start: 20080101
  2. PREMARIN [Suspect]
     Indication: VULVOVAGINAL DRYNESS
     Dosage: UNK, WEEKLY (Q WK)
     Route: 067
     Dates: start: 20080101, end: 20120301
  3. PREMARIN [Concomitant]
     Indication: VULVOVAGINAL DRYNESS
     Dosage: UNK
     Dates: start: 20080101, end: 20120301
  4. PREMARIN [Suspect]
  5. PREMARIN [Suspect]
     Indication: PROPHYLAXIS URINARY TRACT INFECTION
     Dosage: 0.5 G, WEEKLY
     Route: 067
     Dates: end: 20120315
  6. PREMARIN [Suspect]
     Indication: VULVOVAGINAL PAIN

REACTIONS (1)
  - VULVOVAGINAL PAIN [None]
